FAERS Safety Report 19170636 (Version 1)
Quarter: 2021Q2

REPORT INFORMATION
  Report Type: Spontaneous
  Country: TN (occurrence: TN)
  Receive Date: 20210422
  Receipt Date: 20210422
  Transmission Date: 20210717
  Serious: Yes (Hospitalization, Other)
  Sender: FDA-Public Use
  Company Number: TN-GLAXOSMITHKLINE-TNCH2021GSK018914

PATIENT
  Age: 29 Year
  Sex: Male

DRUGS (1)
  1. TERBINAFINE HYDROCHLORIDE. [Suspect]
     Active Substance: TERBINAFINE HYDROCHLORIDE
     Indication: ONYCHOMYCOSIS
     Dosage: UNK
     Route: 048

REACTIONS (10)
  - Rash [Recovered/Resolved]
  - Rash maculo-papular [Recovered/Resolved]
  - Prurigo [Recovered/Resolved]
  - Eosinophilia [Recovered/Resolved]
  - Rash papular [Recovered/Resolved]
  - Pyrexia [Recovered/Resolved]
  - Lymphadenopathy [Recovered/Resolved]
  - Hepatic cytolysis [Recovered/Resolved]
  - Drug reaction with eosinophilia and systemic symptoms [Recovered/Resolved]
  - Rash erythematous [Recovered/Resolved]
